FAERS Safety Report 19902861 (Version 4)
Quarter: 2021Q4

REPORT INFORMATION
  Report Type: Report from Study
  Country: None (occurrence: CO)
  Receive Date: 20211001
  Receipt Date: 20211020
  Transmission Date: 20220304
  Serious: Yes (Hospitalization)
  Sender: FDA-Public Use
  Company Number: CO-ABBVIE-21K-036-4100052-00

PATIENT
  Age: 68 Year
  Sex: Male

DRUGS (2)
  1. VENCLEXTA [Suspect]
     Active Substance: VENETOCLAX
     Indication: Chronic lymphocytic leukaemia
     Route: 048
     Dates: start: 20210923, end: 20210923
  2. VENCLEXTA [Suspect]
     Active Substance: VENETOCLAX
     Route: 048
     Dates: start: 20211012

REACTIONS (4)
  - Laboratory test abnormal [Not Recovered/Not Resolved]
  - Infection [Recovering/Resolving]
  - Blood creatinine increased [Not Recovered/Not Resolved]
  - Blood folate increased [Not Recovered/Not Resolved]

NARRATIVE: CASE EVENT DATE: 20210101
